FAERS Safety Report 8421090-5 (Version None)
Quarter: 2012Q2

REPORT INFORMATION
  Report Type: 
  Country: None (occurrence: None)
  Receive Date: 20120604
  Receipt Date: 20120604
  Transmission Date: 20120825
  Serious: Yes (Other)
  Sender: FDA-Public Use
  Company Number: None

PATIENT
  Age: 71 Year
  Sex: Male
  Weight: 97.5234 kg

DRUGS (1)
  1. ATORVASTIN SODIUM [Suspect]
     Indication: BLOOD CHOLESTEROL INCREASED
     Dosage: 1 TABLET EVERYDAY BUCCAL
     Route: 002
     Dates: start: 20120115, end: 20120201

REACTIONS (2)
  - LETHARGY [None]
  - MYALGIA [None]
